FAERS Safety Report 18477781 (Version 1)
Quarter: 2020Q4

REPORT INFORMATION
  Report Type: Spontaneous
  Country: FR (occurrence: FR)
  Receive Date: 20201108
  Receipt Date: 20201108
  Transmission Date: 20210114
  Serious: Yes (Hospitalization)
  Sender: FDA-Public Use
  Company Number: FR-UCBSA-2020044536

PATIENT
  Age: 1 Day
  Sex: Male
  Weight: 3.05 kg

DRUGS (2)
  1. EDEX [Suspect]
     Active Substance: ALPROSTADIL
     Indication: VENTRICULAR SEPTAL DEFECT
     Dosage: 18.29 NANOGRAM
     Route: 042
     Dates: start: 20170424, end: 20170503
  2. MORPHINE [Suspect]
     Active Substance: MORPHINE
     Indication: PAIN
     Dosage: 30.48 MICROGRAM, HOURLY
     Route: 042
     Dates: start: 20170425, end: 20170503

REACTIONS (2)
  - Apnoea [Recovered/Resolved]
  - Product use issue [Unknown]

NARRATIVE: CASE EVENT DATE: 20170424
